FAERS Safety Report 10312698 (Version 3)
Quarter: 2014Q3

REPORT INFORMATION
  Report Type: Report from Study
  Country: AU (occurrence: AU)
  Receive Date: 20140718
  Receipt Date: 20140903
  Transmission Date: 20150326
  Serious: Yes (Hospitalization, Disabling)
  Sender: FDA-Public Use
  Company Number: PHHY2014AU067363

PATIENT
  Age: 61 Year
  Sex: Female

DRUGS (3)
  1. ACLASTA [Suspect]
     Active Substance: ZOLEDRONIC ACID
     Dosage: 5 MG
     Route: 042
     Dates: start: 201203
  2. LYRICA [Concomitant]
     Active Substance: PREGABALIN
     Indication: SCIATICA
     Dosage: 25 MG, 12 HOURLY
     Dates: start: 20140423
  3. BRUFEN//IBUPROFEN [Concomitant]
     Indication: BACK DISORDER
     Dosage: 400 MG, 12 HOURLY

REACTIONS (5)
  - Hypercholesterolaemia [Not Recovered/Not Resolved]
  - Colon adenoma [Recovered/Resolved]
  - Back disorder [Not Recovered/Not Resolved]
  - Polyp [Recovered/Resolved]
  - Gastrointestinal tract adenoma [Recovered/Resolved]

NARRATIVE: CASE EVENT DATE: 2013
